FAERS Safety Report 7217383-X (Version None)
Quarter: 2011Q1

REPORT INFORMATION
  Report Type: 
  Country: None (occurrence: None)
  Receive Date: 20110110
  Receipt Date: 20101228
  Transmission Date: 20110831
  Serious: Yes (Other)
  Sender: FDA-Public Use
  Company Number: PHHY2010BR80487

PATIENT
  Sex: Female

DRUGS (1)
  1. DIOVAN [Suspect]

REACTIONS (4)
  - BLOOD PRESSURE INCREASED [None]
  - MEMORY IMPAIRMENT [None]
  - DRUG DOSE OMISSION [None]
  - EYELID OPERATION [None]
